FAERS Safety Report 25711299 (Version 1)
Quarter: 2025Q3

REPORT INFORMATION
  Report Type: Spontaneous
  Country: EU (occurrence: EU)
  Receive Date: 20250821
  Receipt Date: 20250821
  Transmission Date: 20251020
  Serious: Yes (Hospitalization)
  Sender: TEVA
  Company Number: None

PATIENT
  Age: 83 Year
  Sex: Female

DRUGS (10)
  1. SERTRALINE [Interacting]
     Active Substance: SERTRALINE HYDROCHLORIDE
     Indication: Product used for unknown indication
     Dosage: 30 TABLETS 1 TABLET / 24 H
     Route: 048
     Dates: start: 20250117, end: 20250415
  2. MIRTAZAPINE [Interacting]
     Active Substance: MIRTAZAPINE
     Indication: Product used for unknown indication
     Dosage: 30 TABLETS, 0.5 TABLET / 24 H
     Route: 048
     Dates: start: 20250220, end: 20250415
  3. METOCLOPRAMIDE HYDROCHLORIDE [Concomitant]
     Active Substance: METOCLOPRAMIDE HYDROCHLORIDE
     Indication: Product used for unknown indication
     Dosage: METOCLOPRAMIDA (1958A) 1 TABLET / 8 H
     Route: 048
     Dates: start: 20250407, end: 20250416
  4. PREGABALIN [Concomitant]
     Active Substance: PREGABALIN
     Indication: Product used for unknown indication
     Dosage: PREGABALINA (3897A) 1 CAPSULE / 12 H
     Route: 048
     Dates: start: 20241218, end: 20250416
  5. SOLIFENACINA [Concomitant]
     Indication: Product used for unknown indication
     Dosage: SOLIFENACINA (2919A) 1 TABLET / 24 H
     Route: 048
     Dates: start: 20241219, end: 20250728
  6. INDAPAMIDE [Interacting]
     Active Substance: INDAPAMIDE
     Indication: Product used for unknown indication
     Dosage: 30 TABLETS 1 TABLET / 24 H
     Route: 048
     Dates: start: 20250404, end: 20250415
  7. BROMAZEPAM [Concomitant]
     Active Substance: BROMAZEPAM
     Indication: Product used for unknown indication
     Dosage: BROMAZEPAM (510A) 1 CAPSULE / 24 H
     Route: 048
     Dates: start: 20240221, end: 20250728
  8. LEVOFLOXACIN [Concomitant]
     Active Substance: LEVOFLOXACIN
     Indication: Product used for unknown indication
     Dosage: 500 MG 14 TABLETS 1 TABLET / 24 H
     Route: 048
     Dates: start: 20250404, end: 20250416
  9. FAMOTIDINE [Concomitant]
     Active Substance: FAMOTIDINE
     Indication: Product used for unknown indication
     Dosage: FAMOTIDINA (2100A) 1 TABLET / 24 H
     Route: 048
     Dates: start: 20220608, end: 20250728
  10. TAMSULOSIN HYDROCHLORIDE [Concomitant]
     Active Substance: TAMSULOSIN HYDROCHLORIDE
     Indication: Product used for unknown indication
     Dosage: TAMSULOSIN HYDROCHLORIDE (2751CH) 1 TABLET / 24 H
     Route: 048
     Dates: start: 20241211, end: 20250728

REACTIONS (2)
  - Hyponatraemia [Recovered/Resolved]
  - Hypokalaemia [Recovered/Resolved]

NARRATIVE: CASE EVENT DATE: 20250415
